FAERS Safety Report 4718566-0 (Version None)
Quarter: 2005Q3

REPORT INFORMATION
  Report Type: 
  Country: None (occurrence: None)
  Receive Date: 20050719
  Receipt Date: 20050421
  Transmission Date: 20060218
  Serious: Yes (Other)
  Sender: FDA-Public Use
  Company Number: 2005048557

PATIENT
  Sex: Male

DRUGS (1)
  1. CELEBREX [Suspect]
     Indication: BACK PAIN
     Dosage: (200 MG, UNKNOWN)
     Dates: start: 20050301

REACTIONS (4)
  - HYPERSENSITIVITY [None]
  - HYPOACUSIS [None]
  - TINNITUS [None]
  - VERTIGO [None]
